FAERS Safety Report 20937883 (Version 1)
Quarter: 2022Q2

REPORT INFORMATION
  Report Type: Spontaneous
  Country: GB (occurrence: GB)
  Receive Date: 20220609
  Receipt Date: 20220609
  Transmission Date: 20220720
  Serious: Yes (Death)
  Sender: FDA-Public Use
  Company Number: GB-TEVA-2022-GB-2045311

PATIENT
  Age: 84 Year
  Sex: Male

DRUGS (1)
  1. TRAMADOL [Suspect]
     Active Substance: TRAMADOL
     Indication: Product used for unknown indication
     Dosage: HE RECEIVED 100 CAPSULES OF TRAMADOL EACH MONTH OVER AN EXTENDED PERIOD.
     Route: 065

REACTIONS (2)
  - Death [Fatal]
  - Overdose [Fatal]
